FAERS Safety Report 9329409 (Version 1)
Quarter: 2013Q2

REPORT INFORMATION
  Report Type: Spontaneous
  Country: GB (occurrence: GB)
  Receive Date: 20130604
  Receipt Date: 20130604
  Transmission Date: 20140414
  Serious: Yes (Other)
  Sender: FDA-Public Use
  Company Number: GB-GLAXOSMITHKLINE-B0896613A

PATIENT
  Age: 61 Year
  Sex: Male

DRUGS (3)
  1. ACITRETIN [Suspect]
     Indication: PSORIASIS
     Dosage: 30MG PER DAY
     Route: 048
     Dates: start: 20121002
  2. SIMVASTATIN [Concomitant]
     Indication: HYPERCHOLESTEROLAEMIA
     Dates: start: 201301
  3. ATORVASTATIN [Concomitant]
     Dates: start: 20130220

REACTIONS (1)
  - Mass [Unknown]
